FAERS Safety Report 7669150-0 (Version None)
Quarter: 2011Q3

REPORT INFORMATION
  Report Type: 
  Country: None (occurrence: None)
  Receive Date: 20110808
  Receipt Date: 20110725
  Transmission Date: 20111222
  Serious: Yes (Other)
  Sender: FDA-Public Use
  Company Number: PHHY2011MX67925

PATIENT
  Age: 74 Year
  Sex: Female

DRUGS (1)
  1. EXFORGE HCT [Suspect]
     Indication: HYPERTENSION
     Dosage: (VALS 320 MG, AMLO 10 MG, HYDR 25 MG) 1 DF, PER DAY
     Dates: start: 20110501

REACTIONS (1)
  - CHONDROPATHY [None]
